FAERS Safety Report 4790349-5 (Version None)
Quarter: 2005Q4

REPORT INFORMATION
  Report Type: 
  Country: None (occurrence: None)
  Receive Date: 20051005
  Receipt Date: 20050921
  Transmission Date: 20060501
  Serious: Yes (Death, Other)
  Sender: FDA-Public Use
  Company Number: A-US2005-10605

PATIENT
  Age: 64 Year
  Sex: Male

DRUGS (9)
  1. TRACLEER [Suspect]
     Indication: PULMONARY HYPERTENSION
     Dosage: SEE IMAGE, ORAL
     Route: 048
     Dates: start: 20050531, end: 20050704
  2. TRACLEER [Suspect]
     Indication: PULMONARY HYPERTENSION
     Dosage: SEE IMAGE, ORAL
     Route: 048
     Dates: start: 20050705, end: 20050919
  3. NORVASC [Concomitant]
  4. COREG [Concomitant]
  5. ACETYLSALICYLIC ACID SRT [Concomitant]
  6. CAPTOPRIL (CAPATOPRIL) [Concomitant]
  7. LASIX [Concomitant]
  8. POTASSIUM (POTASSIUM) [Concomitant]
  9. OXYGEN (OXYGEN) [Concomitant]

REACTIONS (2)
  - ANAEMIA [None]
  - HYPONATRAEMIA [None]
